FAERS Safety Report 9972272 (Version 2)
Quarter: 2014Q1

REPORT INFORMATION
  Report Type: Report from Study
  Country: US (occurrence: US)
  Receive Date: 20140306
  Receipt Date: 20140306
  Transmission Date: 20141002
  Serious: No
  Sender: FDA-Public Use
  Company Number: US-ABBVIE-12P-163-0978910-00

PATIENT
  Age: 79 Year
  Sex: Female
  Weight: 59.93 kg

DRUGS (16)
  1. HUMIRA [Suspect]
     Indication: PSORIASIS
     Dosage: LOADING DOSE
     Dates: start: 2012, end: 2012
  2. HUMIRA [Suspect]
     Indication: PSORIASIS
     Dosage: ONE WEEK AFETR 80MG DOSE
     Dates: start: 20120802
  3. HUMIRA [Suspect]
     Dates: start: 20120929, end: 201303
  4. HUMIRA [Suspect]
     Dates: start: 201305
  5. KLONOPIN [Concomitant]
     Indication: RESTLESS LEGS SYNDROME
     Dosage: 0.5 MG, AT BEDTIME
  6. RESTASIS [Concomitant]
     Indication: DRY EYE
     Dosage: DAILY
     Route: 047
  7. OCUVITE [Concomitant]
     Indication: PROPHYLAXIS
     Dosage: DAILY
  8. MIRILAX [Concomitant]
     Indication: GASTROINTESTINAL DISORDER
     Dosage: 1/2 TO 1 TSP DAILY
  9. OVER THE COUNTER VITAMINS [Concomitant]
     Indication: PRODUCT USED FOR UNKNOWN INDICATION
     Dosage: DAILY
  10. BLUEBERRY [Concomitant]
     Indication: VITAMIN SUPPLEMENTATION
  11. VIT D3 [Concomitant]
     Indication: VITAMIN SUPPLEMENTATION
  12. CITRACAL [Concomitant]
     Indication: GASTROINTESTINAL DISORDER
  13. CITRACAL [Concomitant]
     Indication: FUNCTIONAL GASTROINTESTINAL DISORDER
  14. PROBIOTICS [Concomitant]
     Indication: SUPPLEMENTATION THERAPY
  15. VITAMIN D [Concomitant]
     Indication: VITAMIN SUPPLEMENTATION
  16. ASPIRIN [Concomitant]
     Indication: PRODUCT USED FOR UNKNOWN INDICATION

REACTIONS (11)
  - Injection site bruising [Not Recovered/Not Resolved]
  - Pruritus [Not Recovered/Not Resolved]
  - Pruritus [Not Recovered/Not Resolved]
  - Erythrodermic psoriasis [Not Recovered/Not Resolved]
  - Contusion [Recovering/Resolving]
  - Injection site pain [Not Recovered/Not Resolved]
  - Injection site haemorrhage [Unknown]
  - Cystitis [Unknown]
  - Injection site pain [Not Recovered/Not Resolved]
  - Psoriasis [Not Recovered/Not Resolved]
  - Drug ineffective [Not Recovered/Not Resolved]
